FAERS Safety Report 20484969 (Version 3)
Quarter: 2022Q2

REPORT INFORMATION
  Report Type: Spontaneous
  Country: US (occurrence: US)
  Receive Date: 20220217
  Receipt Date: 20220406
  Transmission Date: 20220720
  Serious: No
  Sender: FDA-Public Use
  Company Number: US-SA-SAC20220214000179

PATIENT
  Age: 52 Year
  Sex: Female

DRUGS (7)
  1. DUPIXENT [Suspect]
     Active Substance: DUPILUMAB
     Indication: Asthma
     Dosage: 1 DF, 1X
     Route: 058
  2. DUPIXENT [Suspect]
     Active Substance: DUPILUMAB
     Dosage: 300 MG, QOW
     Route: 058
     Dates: start: 20220131
  3. DUPIXENT [Suspect]
     Active Substance: DUPILUMAB
     Dosage: 300 MG, QOW
     Route: 058
     Dates: start: 20220105
  4. RELPAX [Concomitant]
     Active Substance: ELETRIPTAN HYDROBROMIDE
  5. BOTOX [Concomitant]
     Active Substance: ONABOTULINUMTOXINA
     Dosage: 100 IU
  6. EPINEPHRINE [Concomitant]
     Active Substance: EPINEPHRINE
  7. KLONOPIN [Concomitant]
     Active Substance: CLONAZEPAM

REACTIONS (11)
  - Eye discharge [Recovering/Resolving]
  - Ocular hyperaemia [Unknown]
  - Oropharyngeal pain [Unknown]
  - Dry throat [Unknown]
  - Throat irritation [Unknown]
  - Myalgia [Recovered/Resolved]
  - Eye discharge [Unknown]
  - Pain [Recovered/Resolved]
  - Eye pain [Recovered/Resolved]
  - Injection site pain [Unknown]
  - Injection site swelling [Unknown]

NARRATIVE: CASE EVENT DATE: 20200202
